FAERS Safety Report 14691135 (Version 1)
Quarter: 2018Q1

REPORT INFORMATION
  Report Type: Report from Study
  Country: None (occurrence: CZ)
  Receive Date: 20180328
  Receipt Date: 20180328
  Transmission Date: 20180509
  Serious: Yes (Other)
  Sender: FDA-Public Use
  Company Number: CZ-BAUSCH-BL-2018-007113

PATIENT
  Age: 68 Year
  Sex: Male

DRUGS (9)
  1. IMNOVID [Suspect]
     Active Substance: POMALIDOMIDE
     Indication: PLASMA CELL MYELOMA
     Dosage: 21 UNITS UNSPECIFIED, 28 DAYS
     Route: 048
     Dates: end: 20150916
  2. IMNOVID [Suspect]
     Active Substance: POMALIDOMIDE
     Dosage: 21 UNITS UNSPECIFIED, 28 DAYS
     Route: 048
     Dates: end: 20160419
  3. IMNOVID [Suspect]
     Active Substance: POMALIDOMIDE
     Dosage: 21 UNITS UNSPECIFIED, 28 DAYS, DOSE REDUCE
     Route: 048
     Dates: start: 20160610
  4. IMNOVID [Suspect]
     Active Substance: POMALIDOMIDE
     Dosage: 21 UNITS UNSPECIFIED, 28 DAYS
     Route: 048
     Dates: end: 20160322
  5. DEXAMETHASONE. [Suspect]
     Active Substance: DEXAMETHASONE
     Indication: PLASMA CELL MYELOMA
     Route: 065
     Dates: start: 20150902, end: 20160624
  6. IMNOVID [Suspect]
     Active Substance: POMALIDOMIDE
     Dosage: 4 MILLIGRAM, 28 DAYS
     Route: 048
     Dates: start: 20150902
  7. IMNOVID [Suspect]
     Active Substance: POMALIDOMIDE
     Dosage: 21 UNITS UNSPECIFIED, 28 DAYS
     Route: 048
     Dates: end: 20160624
  8. IMNOVID [Suspect]
     Active Substance: POMALIDOMIDE
     Dosage: 21 UNITS UNSPECIFIED, 28 DAYS
     Route: 048
     Dates: end: 20151014
  9. IMNOVID [Suspect]
     Active Substance: POMALIDOMIDE
     Dosage: 21 UNITS UNSPECIFIED, 28 DAYS
     Route: 048
     Dates: end: 20151227

REACTIONS (7)
  - Infection [Unknown]
  - Dyspnoea [Unknown]
  - Neutropenia [Unknown]
  - Thrombocytopenia [Unknown]
  - Fatigue [Unknown]
  - Hypotension [Unknown]
  - Anaemia [Unknown]
